FAERS Safety Report 7995920-5 (Version None)
Quarter: 2011Q4

REPORT INFORMATION
  Report Type: 
  Country: None (occurrence: None)
  Receive Date: 20111220
  Receipt Date: 20111213
  Transmission Date: 20120403
  Serious: Yes (Other)
  Sender: FDA-Public Use
  Company Number: CHPA2011US018000

PATIENT
  Age: 39 Year
  Sex: Female

DRUGS (1)
  1. TRIAMINIC THIN STRIPS ALLERGY [Suspect]
     Indication: HYPERSENSITIVITY
     Dosage: 1 DF, ONCE/SINGLE
     Route: 048
     Dates: start: 20111209, end: 20111209

REACTIONS (3)
  - SWELLING [None]
  - DYSPNOEA [None]
  - RASH [None]
